FAERS Safety Report 18611421 (Version 1)
Quarter: 2020Q4

REPORT INFORMATION
  Report Type: Spontaneous
  Country: US (occurrence: US)
  Receive Date: 20201214
  Receipt Date: 20201214
  Transmission Date: 20210114
  Serious: Yes (Other)
  Sender: FDA-Public Use
  Company Number: US-MAYNE PHARMA-2020MYN000585

PATIENT

DRUGS (2)
  1. TOLSURA [Suspect]
     Active Substance: ITRACONAZOLE
     Indication: TENOSYNOVITIS
     Dosage: 100 MG, 2 PER 1 DAYS
     Route: 065
  2. TOLSURA [Suspect]
     Active Substance: ITRACONAZOLE
     Indication: HISTOPLASMOSIS

REACTIONS (2)
  - Cardiac arrest [Recovered/Resolved]
  - Cardiac failure [Recovered/Resolved]
